FAERS Safety Report 23137054 (Version 1)
Quarter: 2023Q4

REPORT INFORMATION
  Report Type: Spontaneous
  Country: US (occurrence: US)
  Receive Date: 20231102
  Receipt Date: 20231102
  Transmission Date: 20240109
  Serious: No
  Sender: FDA-Public Use
  Company Number: US-OPELLA-2023OHG010546

PATIENT
  Sex: Female

DRUGS (1)
  1. ROLAIDS ULTRA STRENGTH FRUIT [Suspect]
     Active Substance: CALCIUM CARBONATE\MAGNESIUM HYDROXIDE

REACTIONS (2)
  - Therapeutic response decreased [Unknown]
  - No adverse event [Unknown]

NARRATIVE: CASE EVENT DATE: 20231002
